FAERS Safety Report 11302184 (Version 1)
Quarter: 2015Q3

REPORT INFORMATION
  Report Type: Spontaneous
  Country: US (occurrence: None)
  Receive Date: 20150723
  Receipt Date: 20150723
  Transmission Date: 20151125
  Serious: Yes (Hospitalization)
  Sender: FDA-Public Use
  Company Number: None

PATIENT
  Age: 85 Year
  Sex: Male
  Weight: 82.3 kg

DRUGS (1)
  1. GABAPENTIN. [Suspect]
     Active Substance: GABAPENTIN
     Indication: POST HERPETIC NEURALGIA
     Route: 048
     Dates: start: 20150707, end: 20150721

REACTIONS (12)
  - Decreased appetite [None]
  - Pain [None]
  - Oropharyngeal pain [None]
  - Affect lability [None]
  - Suffocation feeling [None]
  - Insomnia [None]
  - Confusional state [None]
  - Crying [None]
  - Diplopia [None]
  - Throat tightness [None]
  - Nervousness [None]
  - Headache [None]

NARRATIVE: CASE EVENT DATE: 20150721
